FAERS Safety Report 9148751 (Version 1)
Quarter: 2013Q1

REPORT INFORMATION
  Report Type: Spontaneous
  Country: US (occurrence: None)
  Receive Date: 20130227
  Receipt Date: 20130227
  Transmission Date: 20140127
  Serious: Yes (Hospitalization)
  Sender: FDA-Public Use
  Company Number: None

PATIENT
  Age: 70 Year
  Sex: Male
  Weight: 115.67 kg

DRUGS (1)
  1. PREDNISONE [Suspect]
     Dosage: 20 MG. /3/3/ 2/2 /1/1 2PLUS DAYS
     Dates: start: 20130118, end: 20130121

REACTIONS (8)
  - Abdominal distension [None]
  - Oesophageal pain [None]
  - Hyperhidrosis [None]
  - Blood pressure increased [None]
  - Arthralgia [None]
  - Psychomotor hyperactivity [None]
  - Panic reaction [None]
  - Product quality issue [None]
